FAERS Safety Report 25579088 (Version 1)
Quarter: 2025Q3

REPORT INFORMATION
  Report Type: Report from Study
  Country: US (occurrence: US)
  Receive Date: 20250718
  Receipt Date: 20250718
  Transmission Date: 20251021
  Serious: No
  Sender: INCYTE
  Company Number: US-EVENT-003235

PATIENT
  Age: 63 Year
  Weight: 96.145 kg

DRUGS (1)
  1. JAKAFI [Suspect]
     Active Substance: RUXOLITINIB
     Indication: Myelofibrosis
     Dosage: 15 MILLIGRAM, BID
     Route: 065

REACTIONS (3)
  - Thrombocytosis [Unknown]
  - Splenomegaly [Unknown]
  - Contusion [Recovered/Resolved]
